FAERS Safety Report 4683102-4 (Version None)
Quarter: 2005Q2

REPORT INFORMATION
  Report Type: 
  Country: None (occurrence: None)
  Receive Date: 20050602
  Receipt Date: 20050328
  Transmission Date: 20051028
  Serious: No
  Sender: FDA-Public Use
  Company Number: USA050394331

PATIENT
  Age: 58 Year
  Sex: Female

DRUGS (3)
  1. CYMBALTA [Suspect]
     Indication: COMPLEX REGIONAL PAIN SYNDROME
     Dosage: 120 MG DAY
     Dates: start: 20050201, end: 20050301
  2. KLONOPIN [Concomitant]
  3. HORMONE REPLACEMENT THERAPY [Concomitant]

REACTIONS (2)
  - PRESCRIBED OVERDOSE [None]
  - URTICARIA [None]
